FAERS Safety Report 13092537 (Version 1)
Quarter: 2017Q1

REPORT INFORMATION
  Report Type: Spontaneous
  Country: US (occurrence: US)
  Receive Date: 20170106
  Receipt Date: 20170106
  Transmission Date: 20170428
  Serious: No
  Sender: FDA-Public Use
  Company Number: US-JNJFOC-20161201231

PATIENT
  Age: 81 Year
  Sex: Female
  Weight: 61.24 kg

DRUGS (2)
  1. TYLENOL ARTHRITIS PAIN [Suspect]
     Active Substance: ACETAMINOPHEN
     Indication: ARTHRITIS
     Dosage: EXPIRY DATE: 31-MAR-2013
     Route: 048
     Dates: start: 20161114
  2. TYLENOL ARTHRITIS PAIN [Suspect]
     Active Substance: ACETAMINOPHEN
     Route: 048

REACTIONS (2)
  - Dizziness [Not Recovered/Not Resolved]
  - Expired product administered [Not Recovered/Not Resolved]
